FAERS Safety Report 4827042-6 (Version None)
Quarter: 2005Q4

REPORT INFORMATION
  Report Type: 
  Country: None (occurrence: None)
  Receive Date: 20051014
  Receipt Date: 20050714
  Transmission Date: 20060501
  Serious: No
  Sender: FDA-Public Use
  Company Number: 2005SP000428

PATIENT
  Age: 65 Year
  Sex: Female
  Weight: 74.8435 kg

DRUGS (5)
  1. LUNESTA [Suspect]
     Dosage: 2 MG; HS; ORAL
     Route: 048
     Dates: start: 20050426
  2. HYDROCHLOROTHIAZIDE W/ TRIAMTERENE [Concomitant]
  3. CATAPRESS 3 PATCH [Concomitant]
  4. LOTREL [Concomitant]
  5. ALLEGRA [Concomitant]

REACTIONS (1)
  - BLOOD PRESSURE INCREASED [None]
